FAERS Safety Report 4428871-3 (Version None)
Quarter: 2004Q3

REPORT INFORMATION
  Report Type: 
  Country: None (occurrence: None)
  Receive Date: 20040818
  Receipt Date: 20040707
  Transmission Date: 20050211
  Serious: Yes (Other)
  Sender: FDA-Public Use
  Company Number: PHBS2004CA09119

PATIENT
  Sex: Male

DRUGS (4)
  1. ZELNORM [Suspect]
     Dosage: 6 MG, BID
     Route: 048
     Dates: start: 20040601
  2. DEXIDRINE [Concomitant]
  3. DIFFERIN [Concomitant]
     Route: 061
  4. CLINDAMYCIN HCL [Concomitant]
     Route: 061

REACTIONS (4)
  - ABDOMINAL PAIN [None]
  - DIARRHOEA [None]
  - DIARRHOEA HAEMORRHAGIC [None]
  - FEELING ABNORMAL [None]
